FAERS Safety Report 13388509 (Version 1)
Quarter: 2017Q1

REPORT INFORMATION
  Report Type: Spontaneous
  Country: US (occurrence: US)
  Receive Date: 20170330
  Receipt Date: 20170330
  Transmission Date: 20170429
  Serious: Yes (Other)
  Sender: FDA-Public Use
  Company Number: US-PFIZER INC-2017131391

PATIENT
  Age: 8 Year
  Sex: Female

DRUGS (3)
  1. BENZATHINE BENZYLPENICILLIN [Suspect]
     Active Substance: PENICILLIN G BENZATHINE
     Indication: PHARYNGITIS STREPTOCOCCAL
     Dosage: 1.2 MILLION IU, UNK
     Route: 030
  2. IBUPROFEN. [Concomitant]
     Active Substance: IBUPROFEN
     Indication: DISCOMFORT
     Dosage: UNK, AS NEEDED
  3. ACETAMINOPHEN. [Concomitant]
     Active Substance: ACETAMINOPHEN
     Indication: DISCOMFORT
     Dosage: UNK, AS NEEDED

REACTIONS (3)
  - Incorrect route of drug administration [Recovering/Resolving]
  - Muscle necrosis [Recovering/Resolving]
  - Wrong technique in product usage process [Recovering/Resolving]
